FAERS Safety Report 18118626 (Version 2)
Quarter: 2020Q3

REPORT INFORMATION
  Report Type: Spontaneous
  Country: US (occurrence: US)
  Receive Date: 20200806
  Receipt Date: 20200807
  Transmission Date: 20201103
  Serious: No
  Sender: FDA-Public Use
  Company Number: US-PFIZER INC-2020239396

PATIENT
  Age: 66 Year
  Sex: Male

DRUGS (4)
  1. XELJANZ XR [Suspect]
     Active Substance: TOFACITINIB CITRATE
     Indication: PSORIATIC ARTHROPATHY
     Dosage: UNK
  2. SULFASALAZINE. [Concomitant]
     Active Substance: SULFASALAZINE
     Dosage: UNK (EVERY 2 OR 3 WEEKS FOR THE MANAGEMENT OF HIS CONDITION)
  3. COLCHICINE. [Concomitant]
     Active Substance: COLCHICINE
     Dosage: UNK (EVERY 2 OR 3 WEEKS FOR THE MANAGEMENT OF HIS CONDITION)
  4. METHOTREXATE. [Concomitant]
     Active Substance: METHOTREXATE
     Dosage: UNK (EVERY 2 OR 3 WEEKS FOR THE MANAGEMENT OF HIS CONDITION)

REACTIONS (1)
  - Drug ineffective [Unknown]
